FAERS Safety Report 20763424 (Version 1)
Quarter: 2022Q2

REPORT INFORMATION
  Report Type: Report from Study
  Country: US (occurrence: US)
  Receive Date: 20220428
  Receipt Date: 20220428
  Transmission Date: 20220721
  Serious: Yes (Hospitalization)
  Sender: FDA-Public Use
  Company Number: US-BAYER-2022A046064

PATIENT
  Age: 60 Year
  Sex: Female

DRUGS (2)
  1. STIVARGA [Suspect]
     Active Substance: REGORAFENIB
     Indication: Colon cancer
     Dosage: 80 MG, QD (21 OF 28 DAYS)
     Route: 048
     Dates: start: 20220223
  2. STIVARGA [Suspect]
     Active Substance: REGORAFENIB
     Indication: Rectal cancer
     Dosage: 80 MG, QD (21 OF 28 DAYS)
     Route: 048

REACTIONS (7)
  - Hospitalisation [Not Recovered/Not Resolved]
  - Constipation [Unknown]
  - Hepatomegaly [None]
  - Splenomegaly [None]
  - Asthenia [Unknown]
  - Decreased appetite [Unknown]
  - Off label use [None]

NARRATIVE: CASE EVENT DATE: 20220223
